FAERS Safety Report 21651860 (Version 1)
Quarter: 2022Q4

REPORT INFORMATION
  Report Type: Spontaneous
  Country: US (occurrence: US)
  Receive Date: 20221128
  Receipt Date: 20221128
  Transmission Date: 20230112
  Serious: No
  Sender: FDA-Public Use
  Company Number: US-APOTEX-2022AP014858

PATIENT
  Sex: Female

DRUGS (1)
  1. KETOROLAC TROMETHAMINE [Suspect]
     Active Substance: KETOROLAC TROMETHAMINE
     Indication: Eye operation
     Dosage: 1 GTT DROPS, QD, ONCE DROP IN LEFT EYE
     Route: 047
     Dates: start: 20221022

REACTIONS (2)
  - Product dose omission issue [Unknown]
  - Eye pain [Unknown]

NARRATIVE: CASE EVENT DATE: 20221001
